FAERS Safety Report 6316156-X (Version None)
Quarter: 2009Q3

REPORT INFORMATION
  Report Type: 
  Country: None (occurrence: None)
  Receive Date: 20090820
  Receipt Date: 20090811
  Transmission Date: 20100115
  Serious: Yes (Hospitalization)
  Sender: FDA-Public Use
  Company Number: US-MYLANLABS-2009S1014283

PATIENT
  Age: 70 Year
  Sex: Female
  Weight: 62.6 kg

DRUGS (9)
  1. FLUCONAZOLE [Suspect]
     Indication: PNEUMONIA PNEUMOCOCCAL
     Route: 048
     Dates: start: 20090101, end: 20090809
  2. FENTANYL TRANSDERMAL SYSTEM [Interacting]
     Indication: CANCER PAIN
     Dosage: Q3D
     Route: 062
     Dates: start: 20090726, end: 20090805
  3. FENTANYL TRANSDERMAL SYSTEM [Interacting]
     Dosage: CHANGED PATCHES Q3D
     Route: 062
     Dates: start: 20090805, end: 20090809
  4. XANAX [Concomitant]
     Indication: INSOMNIA
     Dosage: AT BEDTIME AS NEEDED
     Route: 048
  5. BACTRIM [Concomitant]
     Indication: URINARY TRACT INFECTION
     Route: 048
  6. PROTONIX [Concomitant]
     Route: 048
  7. NITROFURANTOIN [Concomitant]
     Indication: URINARY TRACT INFECTION
     Route: 048
  8. CELEXA [Concomitant]
     Route: 048
  9. LOVENOX [Concomitant]
     Indication: DEEP VEIN THROMBOSIS
     Dosage: DVT IN FEMORAL ARTERY
     Route: 058

REACTIONS (8)
  - DISORIENTATION [None]
  - DISTURBANCE IN ATTENTION [None]
  - DRUG EFFECT INCREASED [None]
  - DRUG INTERACTION [None]
  - FEELING ABNORMAL [None]
  - HYPOVENTILATION [None]
  - SEDATION [None]
  - SOMNOLENCE [None]
